FAERS Safety Report 5245338-3 (Version None)
Quarter: 2007Q1

REPORT INFORMATION
  Report Type: 
  Country: None (occurrence: None)
  Receive Date: 20070223
  Receipt Date: 20070221
  Transmission Date: 20070707
  Serious: Yes (Hospitalization, Other)
  Sender: FDA-Public Use
  Company Number: DE-AVENTIS-200710466DE

PATIENT
  Age: 68 Year
  Weight: 70 kg

DRUGS (20)
  1. DOCETAXEL [Suspect]
     Indication: BREAST CANCER
     Route: 042
     Dates: start: 20060918, end: 20060918
  2. ADRIAMYCIN                         /00330901/ [Suspect]
     Indication: BREAST CANCER
     Route: 042
     Dates: start: 20060526, end: 20060803
  3. CYCLOPHOSPHAMIDE [Suspect]
     Indication: BREAST CANCER
     Route: 042
     Dates: start: 20060526, end: 20060803
  4. BELOC ZOK [Concomitant]
     Dosage: DOSE: 1-0-0
  5. MARCUMAR [Concomitant]
     Dosage: DOSE QUANTITY: 0.5
  6. BETA-ACETYLDIGOXIN [Concomitant]
  7. MADOPAR                            /00349201/ [Concomitant]
  8. DEXAMETHASONE [Concomitant]
     Indication: PREMEDICATION
     Route: 042
  9. DEXAMETHASONE [Concomitant]
     Route: 042
     Dates: start: 20060918, end: 20060918
  10. KEVATRIL [Concomitant]
     Indication: PREMEDICATION
     Route: 042
  11. MESNA [Concomitant]
     Indication: PREMEDICATION
     Route: 042
  12. TRIMETHOPRIM [Concomitant]
     Dosage: DOSE QUANTITY: 1
     Dates: start: 20060822, end: 20060823
  13. METOCLOPRAMID [Concomitant]
     Dates: start: 20060826, end: 20060904
  14. METOCLOPRAMID [Concomitant]
     Dosage: DOSE: 2 AMPOULES
     Route: 042
     Dates: start: 20060918, end: 20060918
  15. METOCLOPRAMID [Concomitant]
     Indication: PREMEDICATION
     Dates: start: 20060826, end: 20060904
  16. METOCLOPRAMID [Concomitant]
     Dosage: DOSE: 2 AMPOULES
     Route: 042
     Dates: start: 20060918, end: 20060918
  17. AQUAPHOR                           /00298701/ [Concomitant]
     Dates: start: 20060825, end: 20060830
  18. BROMAZEPAM [Concomitant]
     Dates: start: 20060826, end: 20060910
  19. JODID [Concomitant]
     Dates: start: 20060826, end: 20060829
  20. GENTAMICIN [Concomitant]
     Dates: start: 20060826, end: 20060904

REACTIONS (6)
  - DRUG TOXICITY [None]
  - GASTROINTESTINAL INFECTION [None]
  - LEFT VENTRICULAR FAILURE [None]
  - NEUROPATHY PERIPHERAL [None]
  - QUADRIPLEGIA [None]
  - RESPIRATORY FAILURE [None]
